FAERS Safety Report 4953688-0 (Version None)
Quarter: 2006Q1

REPORT INFORMATION
  Report Type: 
  Country: None (occurrence: None)
  Receive Date: 20060324
  Receipt Date: 20060308
  Transmission Date: 20060701
  Serious: Yes (Other)
  Sender: FDA-Public Use
  Company Number: ES-NOVOPROD-251504

PATIENT
  Age: 15 Year
  Sex: Female
  Weight: 62 kg

DRUGS (2)
  1. LEVEMIR [Suspect]
     Indication: DIABETES MELLITUS INSULIN-DEPENDENT
     Dosage: 38 IU
     Route: 058
     Dates: start: 20060206, end: 20060306
  2. INSULIN LISPRO [Concomitant]
     Dates: start: 20040101

REACTIONS (3)
  - PRURIGO [None]
  - RASH [None]
  - SCARLET FEVER [None]
